FAERS Safety Report 24131500 (Version 1)
Quarter: 2024Q3

REPORT INFORMATION
  Report Type: Spontaneous
  Country: US (occurrence: None)
  Receive Date: 20240723
  Receipt Date: 20240723
  Transmission Date: 20241016
  Serious: Yes (Other)
  Sender: Public
  Company Number: None

PATIENT
  Age: 69 Year
  Sex: Female
  Weight: 70 kg

DRUGS (3)
  1. DALBAVANCIN [Suspect]
     Active Substance: DALBAVANCIN
     Indication: Arthritis infective
     Dosage: 1500 MG WEEKLY X 2 DOSES INTRAVENOUS?
     Route: 042
     Dates: start: 20240711, end: 20240711
  2. DALBAVANCIN [Suspect]
     Active Substance: DALBAVANCIN
     Indication: Device related infection
  3. DALBAVANCIN [Suspect]
     Active Substance: DALBAVANCIN

REACTIONS (3)
  - Jaw disorder [None]
  - Discomfort [None]
  - Throat tightness [None]

NARRATIVE: CASE EVENT DATE: 20240711
